FAERS Safety Report 13036158 (Version 1)
Quarter: 2016Q4

REPORT INFORMATION
  Report Type: Spontaneous
  Country: US (occurrence: US)
  Receive Date: 20161216
  Receipt Date: 20161216
  Transmission Date: 20170207
  Serious: No
  Sender: FDA-Public Use
  Company Number: US-PERRIGO-16US001419

PATIENT
  Age: 81 Year
  Sex: Female
  Weight: 46.71 kg

DRUGS (4)
  1. BACITRACIN. [Suspect]
     Active Substance: BACITRACIN
     Indication: OCULAR HYPERAEMIA
     Dosage: SMALL AMOUNT EACH EYE, SINGLE
     Route: 047
     Dates: start: 20160205, end: 20160205
  2. BACITRACIN. [Suspect]
     Active Substance: BACITRACIN
     Indication: EYE IRRITATION
  3. BACITRACIN. [Suspect]
     Active Substance: BACITRACIN
     Indication: EYE PRURITUS
  4. BACITRACIN. [Suspect]
     Active Substance: BACITRACIN
     Indication: EYE IRRITATION

REACTIONS (3)
  - Rhinorrhoea [Not Recovered/Not Resolved]
  - Condition aggravated [Not Recovered/Not Resolved]
  - Off label use [Recovered/Resolved]

NARRATIVE: CASE EVENT DATE: 20160205
